FAERS Safety Report 7168370-1 (Version None)
Quarter: 2010Q4

REPORT INFORMATION
  Report Type: 
  Country: None (occurrence: None)
  Receive Date: 20101216
  Receipt Date: 20101207
  Transmission Date: 20110411
  Serious: Yes (Hospitalization)
  Sender: FDA-Public Use
  Company Number: US-GENENTECH-309762

PATIENT
  Sex: Male

DRUGS (12)
  1. LUCENTIS [Suspect]
     Indication: DIABETIC RETINAL OEDEMA
     Dosage: 0.5 MG, PRN
     Route: 031
     Dates: start: 20071126, end: 20100208
  2. LUCENTIS [Suspect]
     Dosage: 2 MG, PRN
     Route: 031
     Dates: start: 20100312
  3. ZOCOR [Concomitant]
     Indication: PRODUCT USED FOR UNKNOWN INDICATION
     Dosage: UNK
     Dates: start: 19970101
  4. ENALAPRIL [Concomitant]
     Indication: PROPHYLAXIS
     Dosage: UNK
     Dates: start: 19990101
  5. DEPAKOTE [Concomitant]
     Indication: PRODUCT USED FOR UNKNOWN INDICATION
     Dosage: UNK
     Dates: start: 20030101
  6. ASPIRIN [Concomitant]
     Indication: PRODUCT USED FOR UNKNOWN INDICATION
     Dosage: UNK
     Dates: start: 19970101
  7. LANTUS [Concomitant]
     Indication: PRODUCT USED FOR UNKNOWN INDICATION
     Dosage: UNK
     Dates: start: 20020101
  8. WELLBUTRIN [Concomitant]
     Indication: PRODUCT USED FOR UNKNOWN INDICATION
     Dosage: UNK
     Dates: start: 20090101
  9. VITAMIN D [Concomitant]
     Indication: PRODUCT USED FOR UNKNOWN INDICATION
     Dosage: UNK
     Dates: start: 20090901
  10. ZYRTEC [Concomitant]
     Indication: PRODUCT USED FOR UNKNOWN INDICATION
     Dosage: UNK
     Dates: start: 20090901
  11. RISPERDAL [Concomitant]
     Indication: PRODUCT USED FOR UNKNOWN INDICATION
     Dosage: UNK
     Dates: start: 20100101
  12. COGENTIN [Concomitant]
     Indication: PRODUCT USED FOR UNKNOWN INDICATION
     Dosage: UNK
     Dates: start: 20100801

REACTIONS (2)
  - BACK PAIN [None]
  - BLOOD PRESSURE INCREASED [None]
